FAERS Safety Report 10668000 (Version 1)
Quarter: 2014Q4

REPORT INFORMATION
  Report Type: Spontaneous
  Country: US (occurrence: US)
  Receive Date: 20141222
  Receipt Date: 20141222
  Transmission Date: 20150529
  Serious: No
  Sender: FDA-Public Use
  Company Number: US-GLAXOSMITHKLINE-A1089576A

PATIENT

DRUGS (1)
  1. SORIATANE [Suspect]
     Active Substance: ACITRETIN
     Indication: PSORIASIS
     Dosage: 10 MG, 25 MG, UNKNOWN DOSING
     Route: 065
     Dates: start: 200301

REACTIONS (2)
  - Drug dose omission [Not Recovered/Not Resolved]
  - Rash [Not Recovered/Not Resolved]
